FAERS Safety Report 8307509-9 (Version None)
Quarter: 2012Q2

REPORT INFORMATION
  Report Type: 
  Country: None (occurrence: None)
  Receive Date: 20120424
  Receipt Date: 20120412
  Transmission Date: 20120825
  Serious: Yes (Hospitalization)
  Sender: FDA-Public Use
  Company Number: FR-JNJFOC-20120409858

PATIENT
  Sex: Female

DRUGS (6)
  1. LORAZEPAM [Suspect]
     Indication: DEPRESSION
     Route: 048
  2. ALVERINE CITRATE, SIMETICONE [Concomitant]
     Indication: PRODUCT USED FOR UNKNOWN INDICATION
     Route: 048
  3. TRAMADOL HCL [Suspect]
     Indication: DEPRESSION
     Route: 048
     Dates: end: 20120109
  4. CACIT VITAMINE D3 [Concomitant]
     Indication: OSTEOPOROSIS
     Route: 048
  5. MIRTAZAPINE [Suspect]
     Indication: DEPRESSION
     Route: 048
  6. TETRAZEPAM [Suspect]
     Indication: PRODUCT USED FOR UNKNOWN INDICATION
     Route: 048
     Dates: end: 20120109

REACTIONS (5)
  - MALAISE [None]
  - FEELING DRUNK [None]
  - DIZZINESS [None]
  - LOSS OF CONSCIOUSNESS [None]
  - HEADACHE [None]
